FAERS Safety Report 5821517-9 (Version None)
Quarter: 2008Q3

REPORT INFORMATION
  Report Type: 
  Country: None (occurrence: None)
  Receive Date: 20080724
  Receipt Date: 20080213
  Transmission Date: 20090109
  Serious: No
  Sender: FDA-Public Use
  Company Number: US-BAYER-200810712BCC

PATIENT
  Age: 80 Year
  Sex: Female
  Weight: 79 kg

DRUGS (7)
  1. ALEVE [Suspect]
     Indication: BACK PAIN
     Dosage: AS USED: 880 MG  UNIT DOSE: 220 MG
     Route: 048
     Dates: start: 20080212
  2. GLIPIZIDE [Concomitant]
  3. ACTOS [Concomitant]
  4. AMLODIPINE [Concomitant]
  5. VYTORIN [Concomitant]
  6. DIOVAN [Concomitant]
  7. METFORMIN [Concomitant]

REACTIONS (1)
  - NO ADVERSE EVENT [None]
